FAERS Safety Report 19095551 (Version 2)
Quarter: 2021Q2

REPORT INFORMATION
  Report Type: Spontaneous
  Country: US (occurrence: US)
  Receive Date: 20210406
  Receipt Date: 20210519
  Transmission Date: 20210717
  Serious: Yes (Life-Threatening, Hospitalization, Other)
  Sender: FDA-Public Use
  Company Number: US-CIPLA LTD.-2021US02587

PATIENT

DRUGS (19)
  1. ALBENDAZOLE. [Suspect]
     Active Substance: ALBENDAZOLE
     Dosage: 300 MG (AT 180 MIN)
     Route: 065
     Dates: start: 2018
  2. ALBENDAZOLE. [Suspect]
     Active Substance: ALBENDAZOLE
     Dosage: 400 MILLIGRAM, TID
     Route: 065
     Dates: start: 2018
  3. ALBENDAZOLE. [Suspect]
     Active Substance: ALBENDAZOLE
     Dosage: 0.001 MG (AT 15 MIN INITIAL)
     Route: 065
     Dates: start: 2018
  4. ALBENDAZOLE. [Suspect]
     Active Substance: ALBENDAZOLE
     Indication: NEUROCYSTICERCOSIS
     Dosage: 400 MILLIGRAM, TID
     Route: 065
     Dates: start: 20171020
  5. ALBENDAZOLE. [Suspect]
     Active Substance: ALBENDAZOLE
     Dosage: 0.01 MG (AT 45 MIN)
     Route: 065
     Dates: start: 2018
  6. ALBENDAZOLE. [Suspect]
     Active Substance: ALBENDAZOLE
     Dosage: 0.03 MG (AT 60 MIN)
     Route: 065
     Dates: start: 2018
  7. ALBENDAZOLE. [Suspect]
     Active Substance: ALBENDAZOLE
     Dosage: 3 MG (AT 120 MIN)
     Route: 065
     Dates: start: 2018
  8. ALBENDAZOLE. [Suspect]
     Active Substance: ALBENDAZOLE
     Dosage: 10 MG (AT 135 MIN)
     Route: 065
     Dates: start: 2018
  9. ALBENDAZOLE. [Suspect]
     Active Substance: ALBENDAZOLE
     Dosage: 1 MG (AT 105 MIN)
     Route: 065
     Dates: start: 2018
  10. ALBENDAZOLE. [Suspect]
     Active Substance: ALBENDAZOLE
     Dosage: 30 MG (AT 150 MIN)
     Route: 065
     Dates: start: 2018
  11. ALBENDAZOLE. [Suspect]
     Active Substance: ALBENDAZOLE
     Dosage: 100 MG (AT 165 MIN)
     Route: 065
     Dates: start: 2018
  12. DEXAMETHASONE. [Concomitant]
     Active Substance: DEXAMETHASONE
     Indication: NEUROCYSTICERCOSIS
     Dosage: 4 MILLIGRAM, TID
     Route: 042
  13. ALBENDAZOLE. [Suspect]
     Active Substance: ALBENDAZOLE
     Dosage: 400 MILLIGRAM, TID
     Route: 048
     Dates: start: 201710, end: 2017
  14. ALBENDAZOLE. [Suspect]
     Active Substance: ALBENDAZOLE
     Dosage: 0.003 MG (AT 30 MIN)
     Route: 065
     Dates: start: 2018
  15. ALBENDAZOLE. [Suspect]
     Active Substance: ALBENDAZOLE
     Dosage: 0.3 MG (AT 90 MIN)
     Route: 065
     Dates: start: 2018
  16. ALBENDAZOLE. [Suspect]
     Active Substance: ALBENDAZOLE
     Dosage: 10 MG (AT 135 MIN)
     Route: 065
     Dates: start: 2018
  17. ALBENDAZOLE. [Suspect]
     Active Substance: ALBENDAZOLE
     Dosage: 0.1 MG (AT 75 MIN)
     Route: 065
     Dates: start: 2018
  18. DEXAMETHASONE. [Concomitant]
     Active Substance: DEXAMETHASONE
     Dosage: 8 MILLIGRAM, BID
     Route: 048
  19. PRAZIQUANTEL. [Concomitant]
     Active Substance: PRAZIQUANTEL
     Indication: NEUROCYSTICERCOSIS
     Dosage: 1500 MILLIGRAM, TID
     Route: 065

REACTIONS (4)
  - Treatment noncompliance [Unknown]
  - Drug intolerance [Unknown]
  - Hypersensitivity [Recovered/Resolved]
  - Disease progression [Recovered/Resolved]

NARRATIVE: CASE EVENT DATE: 201710
